FAERS Safety Report 21322373 (Version 1)
Quarter: 2022Q3

REPORT INFORMATION
  Report Type: Spontaneous
  Country: US (occurrence: US)
  Receive Date: 20220912
  Receipt Date: 20220912
  Transmission Date: 20221027
  Serious: No
  Sender: FDA-Public Use
  Company Number: US-AMNEAL PHARMACEUTICALS-2021-AMRX-03509

PATIENT
  Sex: Female

DRUGS (3)
  1. GABAPENTIN [Suspect]
     Active Substance: GABAPENTIN
     Indication: Anxiety
     Dosage: 100 MILLIGRAM, QD
     Route: 065
  2. GABAPENTIN [Suspect]
     Active Substance: GABAPENTIN
     Dosage: UNK UNK,EVERY OTHER DAY
     Route: 065
  3. GABAPENTIN [Suspect]
     Active Substance: GABAPENTIN
     Dosage: 2 ADDITIONAL DOSES (200 MG TOTAL)
     Route: 065

REACTIONS (13)
  - Temperature regulation disorder [Unknown]
  - Hypoaesthesia [Unknown]
  - Decreased appetite [Unknown]
  - Drug ineffective for unapproved indication [Unknown]
  - Feeling hot [Unknown]
  - Palpitations [Unknown]
  - Sensory disturbance [Unknown]
  - Tachycardia [Unknown]
  - Insomnia [Unknown]
  - Pyrexia [Unknown]
  - Restlessness [Unknown]
  - Swollen tongue [Unknown]
  - Vision blurred [Unknown]
